FAERS Safety Report 22644177 (Version 1)
Quarter: 2023Q2

REPORT INFORMATION
  Report Type: Spontaneous
  Country: US (occurrence: None)
  Receive Date: 20230627
  Receipt Date: 20230627
  Transmission Date: 20230721
  Serious: No
  Sender: FDA-Public Use
  Company Number: 2023A146336

PATIENT
  Sex: Female

DRUGS (1)
  1. SYMLIN [Suspect]
     Active Substance: PRAMLINTIDE ACETATE
     Route: 058

REACTIONS (4)
  - Confusional state [Unknown]
  - Expired product administered [Unknown]
  - Device delivery system issue [Unknown]
  - Product use issue [Unknown]
